FAERS Safety Report 7200575-3 (Version None)
Quarter: 2010Q4

REPORT INFORMATION
  Report Type: 
  Country: None (occurrence: None)
  Receive Date: 20101228
  Receipt Date: 20101215
  Transmission Date: 20110411
  Serious: Yes (Other)
  Sender: FDA-Public Use
  Company Number: PHHY2010GB85784

PATIENT
  Age: 54 Year
  Sex: Male

DRUGS (5)
  1. AMLODIPINE BESYLATE [Suspect]
     Indication: HYPERTENSION
     Dosage: 10 MG, QD
  2. CARDURA [Suspect]
     Dosage: 8 MG, BID
  3. ATENOLOL [Concomitant]
     Dosage: 100 MG
  4. BENDROFLUMETHIAZIDE [Concomitant]
  5. LISINOPRIL [Concomitant]
     Dosage: 20 MG

REACTIONS (2)
  - BLOOD PRESSURE INADEQUATELY CONTROLLED [None]
  - FIBROMUSCULAR DYSPLASIA [None]
